FAERS Safety Report 19909575 (Version 2)
Quarter: 2021Q4

REPORT INFORMATION
  Report Type: Spontaneous
  Country: US (occurrence: US)
  Receive Date: 20211002
  Receipt Date: 20211012
  Transmission Date: 20220303
  Serious: Yes (Hospitalization, Other)
  Sender: FDA-Public Use
  Company Number: US-SA-SAC20210929000857

PATIENT
  Age: 2 Year
  Sex: Male
  Weight: 10.3 kg

DRUGS (7)
  1. LUMIZYME [Suspect]
     Active Substance: ALGLUCOSIDASE ALFA
     Indication: Glycogen storage disease type II
     Dosage: 20 MG/KG, QOW
     Route: 042
     Dates: start: 20181220
  2. LUMIZYME [Suspect]
     Active Substance: ALGLUCOSIDASE ALFA
     Dosage: 40 MG/KG, QW
     Route: 042
     Dates: start: 202008
  3. BUDESONIDE [Concomitant]
     Active Substance: BUDESONIDE
  4. FAMOTIDINE [Concomitant]
     Active Substance: FAMOTIDINE
  5. CHOLECALCIFEROL [Concomitant]
     Active Substance: CHOLECALCIFEROL
  6. FERROUS SULFATE [Concomitant]
     Active Substance: FERROUS SULFATE
  7. PROPRANOLOL [Concomitant]
     Active Substance: PROPRANOLOL HYDROCHLORIDE

REACTIONS (14)
  - Respiratory distress [Unknown]
  - Enterovirus infection [Unknown]
  - Rhinovirus infection [Unknown]
  - Gross motor delay [Unknown]
  - Laryngeal stenosis [Unknown]
  - Hypertrophic cardiomyopathy [Unknown]
  - Respiratory failure [Unknown]
  - Blood creatine phosphokinase increased [Unknown]
  - Glucose urine present [Unknown]
  - Drug specific antibody absent [Unknown]
  - Hypotonia [Unknown]
  - Feeding intolerance [Unknown]
  - Complication associated with device [Unknown]
  - Transaminases increased [Unknown]

NARRATIVE: CASE EVENT DATE: 20210101
